FAERS Safety Report 14966182 (Version 1)
Quarter: 2018Q2

REPORT INFORMATION
  Report Type: Spontaneous
  Country: US (occurrence: US)
  Receive Date: 20180603
  Receipt Date: 20180603
  Transmission Date: 20180711
  Serious: Yes (Death)
  Sender: FDA-Public Use
  Company Number: PHEH2018US021464

PATIENT
  Age: 73 Year
  Sex: Male

DRUGS (1)
  1. VOTRIENT [Suspect]
     Active Substance: PAZOPANIB HYDROCHLORIDE
     Indication: THYROID CANCER
     Dosage: 800 MG, QD
     Route: 048
     Dates: start: 20180503

REACTIONS (2)
  - Death [Fatal]
  - Product use in unapproved indication [Unknown]

NARRATIVE: CASE EVENT DATE: 20180531
